FAERS Safety Report 24532406 (Version 1)
Quarter: 2024Q4

REPORT INFORMATION
  Report Type: Spontaneous
  Country: CN (occurrence: CN)
  Receive Date: 20241022
  Receipt Date: 20241022
  Transmission Date: 20250115
  Serious: Yes (Hospitalization, Other)
  Sender: BAXTER
  Company Number: None

PATIENT
  Age: 56 Year
  Sex: Female
  Weight: 62 kg

DRUGS (6)
  1. CYCLOPHOSPHAMIDE [Suspect]
     Active Substance: CYCLOPHOSPHAMIDE
     Indication: Chemotherapy
     Dosage: 1.0 G, ONE TIME IN ONE DAY, DILUTED WITH 100 ML OF 0.9% SODIUM CHLORIDE, FOURTH CHEMOTHERAPY, (50-60
     Route: 041
     Dates: start: 20240711, end: 20240711
  2. CYCLOPHOSPHAMIDE [Suspect]
     Active Substance: CYCLOPHOSPHAMIDE
     Indication: Breast cancer female
  3. SODIUM CHLORIDE [Suspect]
     Active Substance: SODIUM CHLORIDE
     Indication: Medication dilution
     Dosage: 100 ML, ONE TIME IN ONE DAY, INJECTION, USED TO DILUTE 1.0 G OF CYCLOPHOSPHAMIDE, FOURTH CHEMOTHERAP
     Route: 041
     Dates: start: 20240711, end: 20240711
  4. DEXTROSE [Suspect]
     Active Substance: DEXTROSE MONOHYDRATE
     Indication: Medication dilution
     Dosage: 100 ML, ONE TIME IN ONE DAY, INJECTION, USED TO DILUTE 150 MG OF EPIRUBICIN HYDROCHLORIDE, FOURTH CH
     Route: 041
     Dates: start: 20240711, end: 20240711
  5. EPIRUBICIN HYDROCHLORIDE [Suspect]
     Active Substance: EPIRUBICIN HYDROCHLORIDE
     Indication: Chemotherapy
     Dosage: 150 MG, ONE TIME IN ONE DAY, DILUTED WITH 100 ML OF 5% GLUCOSE, FOURTH CHEMOTHERAPY, (50-60 DROPS/MI
     Route: 041
     Dates: start: 20240711, end: 20240711
  6. EPIRUBICIN HYDROCHLORIDE [Suspect]
     Active Substance: EPIRUBICIN HYDROCHLORIDE
     Indication: Breast cancer female

REACTIONS (8)
  - Myelosuppression [Unknown]
  - Anaemia [Unknown]
  - Dizziness [Unknown]
  - Hepatic failure [Unknown]
  - Nausea [Unknown]
  - Hypokalaemia [Recovered/Resolved]
  - Depressed mood [Unknown]
  - Headache [Unknown]

NARRATIVE: CASE EVENT DATE: 20240713
